FAERS Safety Report 19808003 (Version 2)
Quarter: 2021Q3

REPORT INFORMATION
  Report Type: Other
  Country: US (occurrence: US)
  Receive Date: 20210908
  Receipt Date: 20210915
  Transmission Date: 20211014
  Serious: Yes (Other)
  Sender: FDA-Public Use
  Company Number: US-ROCHE-2904606

PATIENT

DRUGS (12)
  1. IRINOTECAN [Suspect]
     Active Substance: IRINOTECAN
     Indication: NON-SMALL CELL LUNG CANCER
     Route: 065
  2. VINORELBINE [Suspect]
     Active Substance: VINORELBINE TARTRATE
     Indication: NON-SMALL CELL LUNG CANCER
     Route: 065
  3. OSIMERTINIB. [Suspect]
     Active Substance: OSIMERTINIB
     Indication: NON-SMALL CELL LUNG CANCER
     Route: 065
  4. CARBOPLATIN. [Suspect]
     Active Substance: CARBOPLATIN
     Indication: NON-SMALL CELL LUNG CANCER
     Route: 065
  5. DOCETAXEL. [Suspect]
     Active Substance: DOCETAXEL
     Indication: NON-SMALL CELL LUNG CANCER
     Route: 065
  6. NAB?PACLITAXEL [Suspect]
     Active Substance: PACLITAXEL
     Indication: NON-SMALL CELL LUNG CANCER
     Route: 065
  7. RAMUCIRUMAB [Suspect]
     Active Substance: RAMUCIRUMAB
     Indication: NON-SMALL CELL LUNG CANCER
     Route: 065
  8. GEMCITABINE. [Suspect]
     Active Substance: GEMCITABINE
     Indication: NON-SMALL CELL LUNG CANCER
     Route: 065
  9. PEMETREXED. [Suspect]
     Active Substance: PEMETREXED
     Indication: NON-SMALL CELL LUNG CANCER
     Route: 065
  10. BEVACIZUMAB. [Suspect]
     Active Substance: BEVACIZUMAB
     Indication: NON-SMALL CELL LUNG CANCER
     Route: 065
  11. CARBOPLATIN. [Suspect]
     Active Substance: CARBOPLATIN
     Indication: NON-SMALL CELL LUNG CANCER
     Route: 065
  12. PLATINUM [Suspect]
     Active Substance: PLATINUM
     Indication: NON-SMALL CELL LUNG CANCER
     Route: 065

REACTIONS (8)
  - Aspartate aminotransferase increased [Unknown]
  - Fatigue [Unknown]
  - Neutropenia [Unknown]
  - Anaemia [Unknown]
  - Thrombocytopenia [Unknown]
  - Ejection fraction decreased [Unknown]
  - Alanine aminotransferase increased [Unknown]
  - Transaminases increased [Unknown]
